FAERS Safety Report 5321808-4 (Version None)
Quarter: 2007Q2

REPORT INFORMATION
  Report Type: 
  Country: None (occurrence: None)
  Receive Date: 20070510
  Receipt Date: 20070503
  Transmission Date: 20071010
  Serious: Yes (Other)
  Sender: FDA-Public Use
  Company Number: AT-PFIZER INC-2007035862

PATIENT
  Sex: Female

DRUGS (1)
  1. DEPOCON [Suspect]
     Indication: CONTRACEPTION
     Route: 030

REACTIONS (1)
  - INJECTION SITE NECROSIS [None]
